FAERS Safety Report 8246786 (Version 15)
Quarter: 2018Q1

REPORT INFORMATION
  Report Type: Report from Study
  Country: US (occurrence: US)
  Receive Date: 20111116
  Receipt Date: 20180308
  Transmission Date: 20180509
  Serious: Yes (Hospitalization, Other)
  Sender: FDA-Public Use
  Company Number: PHEH2011US08280

PATIENT
  Sex: Male

DRUGS (12)
  1. INSPRA [Concomitant]
     Active Substance: EPLERENONE
     Indication: PRODUCT USED FOR UNKNOWN INDICATION
     Dosage: 50 MG, BID
     Route: 065
  2. TASIGNA [Suspect]
     Active Substance: NILOTINIB
     Indication: CHRONIC MYELOID LEUKAEMIA
     Dosage: 150 MG, BID
     Route: 048
     Dates: start: 20120420
  3. TASIGNA [Suspect]
     Active Substance: NILOTINIB
     Dosage: 150 MG, BID
     Route: 048
     Dates: start: 20140105
  4. LOPROX [Concomitant]
     Active Substance: CICLOPIROX\CICLOPIROX OLAMINE
     Indication: PRODUCT USED FOR UNKNOWN INDICATION
     Dosage: UNK UKN, UNK
     Route: 065
  5. RANITIDINE HYDROCHLORIDE. [Concomitant]
     Active Substance: RANITIDINE HYDROCHLORIDE
     Indication: PRODUCT USED FOR UNKNOWN INDICATION
     Dosage: 1 MG, AS NEEDED
     Route: 065
  6. CATAPRES-TTS [Concomitant]
     Active Substance: CLONIDINE
     Indication: PRODUCT USED FOR UNKNOWN INDICATION
     Dosage: UNK UKN, UNK
     Route: 065
  7. ATIVAN [Concomitant]
     Active Substance: LORAZEPAM
     Indication: PRODUCT USED FOR UNKNOWN INDICATION
     Dosage: 1 MG, AS NEEDED
     Route: 065
  8. NITROGLYCERIN. [Concomitant]
     Active Substance: NITROGLYCERIN
     Indication: PAIN
     Dosage: 4 MG, PRN
     Route: 065
  9. PERCOCET [Concomitant]
     Active Substance: ACETAMINOPHEN\OXYCODONE HYDROCHLORIDE
     Indication: PRODUCT USED FOR UNKNOWN INDICATION
     Dosage: UNK UKN, UNK
     Route: 065
  10. TASIGNA [Suspect]
     Active Substance: NILOTINIB
     Dosage: 300 MG, BID
     Route: 048
  11. PROMETHAZINE [Suspect]
     Active Substance: PROMETHAZINE\PROMETHAZINE HYDROCHLORIDE
     Indication: NAUSEA
     Dosage: 25 MG, Q5H
     Route: 065
  12. NOVOLOG [Concomitant]
     Active Substance: INSULIN ASPART
     Indication: PRODUCT USED FOR UNKNOWN INDICATION
     Dosage: 250-300 UNITS PER DAY
     Route: 065

REACTIONS (27)
  - Depressed mood [Unknown]
  - Hypertriglyceridaemia [Unknown]
  - Hypopnoea [Unknown]
  - Headache [Unknown]
  - Herpes zoster [Unknown]
  - Incorrect dose administered [Unknown]
  - Chest discomfort [Unknown]
  - Diabetes mellitus [Unknown]
  - Rhinorrhoea [Unknown]
  - Nausea [Not Recovered/Not Resolved]
  - Vomiting [Unknown]
  - Coronary artery occlusion [Unknown]
  - Haemorrhage [Unknown]
  - Blood glucose increased [Unknown]
  - Gastric disorder [Unknown]
  - Diarrhoea [Unknown]
  - Dizziness [Unknown]
  - Cough [Unknown]
  - Chest pain [Recovered/Resolved]
  - Palpitations [Unknown]
  - Cardiac disorder [Unknown]
  - Malaise [Unknown]
  - Coronary artery disease [Unknown]
  - Blood pressure increased [Unknown]
  - Weight decreased [Unknown]
  - Blood urine present [Unknown]
  - Pruritus [Unknown]
